FAERS Safety Report 10512169 (Version 6)
Quarter: 2016Q1

REPORT INFORMATION
  Report Type: Spontaneous
  Country: JP (occurrence: JP)
  Receive Date: 20141010
  Receipt Date: 20160111
  Transmission Date: 20160525
  Serious: Yes (Hospitalization)
  Sender: FDA-Public Use
  Company Number: JP-AMGEN-JPNOT2014078397

PATIENT
  Age: 68 Year
  Sex: Female
  Weight: 53 kg

DRUGS (20)
  1. BAYASPIRIN [Concomitant]
     Active Substance: ASPIRIN
     Indication: THROMBOSIS
     Dosage: 100 MG, QD
     Route: 048
     Dates: start: 20041129
  2. RENIVACE [Concomitant]
     Active Substance: ENALAPRIL
     Indication: HYPERTENSION
     Dosage: 5 MG, QD
     Route: 048
     Dates: start: 20041129
  3. HOLIN-V [Concomitant]
     Dosage: UNK
  4. SUMIFERON-DS [Concomitant]
     Indication: RENAL CANCER
     Dosage: UNK UNK, QD
     Route: 065
  5. ZYLORIC [Concomitant]
     Active Substance: ALLOPURINOL
     Indication: HYPERURICAEMIA
     Dosage: 100 MG, BID
     Route: 048
     Dates: start: 20060325
  6. MYCOSPOR                           /00806601/ [Concomitant]
     Dosage: UNK
  7. URSO [Concomitant]
     Active Substance: URSODIOL
     Dosage: UNK
  8. RANMARK [Suspect]
     Active Substance: DENOSUMAB
     Indication: METASTASES TO BONE
     Dosage: 120 MG, QD
     Route: 058
     Dates: start: 20130512, end: 20140618
  9. ASPARA-CA [Concomitant]
     Active Substance: CALCIUM ASPARTATE
     Indication: OSTEOPOROSIS
     Dosage: 200 MG, TID
     Route: 048
     Dates: start: 20130527
  10. ROCALTROL [Concomitant]
     Active Substance: CALCITRIOL
     Indication: OSTEOPOROSIS
     Dosage: 0.25 MUG, BID
     Route: 048
     Dates: start: 20130527
  11. FLAGYL [Concomitant]
     Active Substance: METRONIDAZOLE\METRONIDAZOLE HYDROCHLORIDE
     Dosage: UNK
     Route: 067
  12. SUMIFERON                          /05982601/ [Concomitant]
     Indication: RENAL CANCER
     Dosage: 3 MILLION IU, QD
     Route: 058
     Dates: start: 20041227, end: 20091010
  13. SUMIFERON                          /05982601/ [Concomitant]
     Dosage: 6 MILLION IU, QD
     Route: 058
     Dates: start: 20050113, end: 20091010
  14. ZOMETA [Suspect]
     Active Substance: ZOLEDRONIC ACID
     Indication: METASTASES TO BONE
  15. ZOMETA [Suspect]
     Active Substance: ZOLEDRONIC ACID
     Indication: BONE CANCER METASTATIC
     Dosage: 4 MG, QD
     Route: 042
     Dates: start: 20121206, end: 20130511
  16. BEZATOL [Concomitant]
     Active Substance: BEZAFIBRATE
     Indication: HYPERLIPIDAEMIA
     Dosage: 200 MG, BID
     Route: 048
     Dates: start: 20041227
  17. MAINTATE [Concomitant]
     Active Substance: BISOPROLOL FUMARATE
     Indication: CARDIAC FAILURE
     Dosage: 2.5 MG, BID
     Route: 048
     Dates: start: 20140108
  18. WELL BI [Concomitant]
     Dosage: UNK
     Route: 048
  19. ENALAPRIL M [Concomitant]
     Dosage: UNK
     Route: 048
  20. SUMIFERON                          /05982601/ [Concomitant]
     Dosage: 3 MILLION IU, QD
     Route: 058
     Dates: start: 20041227, end: 20050105

REACTIONS (1)
  - Osteonecrosis of jaw [Recovered/Resolved]

NARRATIVE: CASE EVENT DATE: 20140114
